FAERS Safety Report 13234920 (Version 4)
Quarter: 2017Q4

REPORT INFORMATION
  Report Type: Report from Study
  Country: GB (occurrence: GB)
  Receive Date: 20170215
  Receipt Date: 20171129
  Transmission Date: 20180320
  Serious: Yes (Other)
  Sender: FDA-Public Use
  Company Number: GB-CELGENEUS-GBR-2017021063

PATIENT
  Age: 71 Year
  Sex: Female

DRUGS (1)
  1. THALIDOMIDE [Suspect]
     Active Substance: THALIDOMIDE
     Indication: PLASMA CELL MYELOMA
     Route: 048
     Dates: start: 20131223

REACTIONS (1)
  - Endometrial adenocarcinoma [Recovered/Resolved]

NARRATIVE: CASE EVENT DATE: 20160803
